FAERS Safety Report 7578806-X (Version None)
Quarter: 2011Q2

REPORT INFORMATION
  Report Type: 
  Country: None (occurrence: None)
  Receive Date: 20110628
  Receipt Date: 20110617
  Transmission Date: 20111010
  Serious: Yes (Hospitalization)
  Sender: FDA-Public Use
  Company Number: US-PFIZER INC-2010069939

PATIENT
  Sex: Male
  Weight: 70 kg

DRUGS (20)
  1. LASIX [Concomitant]
     Dosage: UNK
     Route: 048
     Dates: start: 20100219, end: 20100520
  2. EPLERENONE [Suspect]
     Indication: CARDIAC FAILURE
     Dosage: 12.5 MG, DAILY
     Route: 048
     Dates: start: 20100113, end: 20100216
  3. BUMEX [Concomitant]
     Dosage: UNK
     Route: 048
     Dates: start: 20100520
  4. FLUTICASONE [Concomitant]
     Dosage: UNK
     Route: 045
     Dates: start: 20040428
  5. EPLERENONE [Suspect]
     Dosage: 25 MG, DAILY
     Route: 048
     Dates: start: 20100217, end: 20100531
  6. LOPRESSOR [Concomitant]
     Dosage: UNK
     Route: 048
     Dates: start: 20090805
  7. AMLODIPINE BESILATE [Concomitant]
     Dosage: UNK
     Route: 048
     Dates: start: 20091104, end: 20100520
  8. K-DUR [Concomitant]
     Dosage: UNK
     Route: 048
     Dates: start: 20100527
  9. NITROGLYCERIN [Concomitant]
     Dosage: UNK
     Route: 048
     Dates: start: 20010104
  10. GLIPIZIDE [Concomitant]
     Dosage: UNK
     Route: 048
     Dates: start: 20080616
  11. PLAVIX [Concomitant]
     Dosage: UNK
     Route: 048
     Dates: start: 20021031
  12. SERENOA REPENS [Concomitant]
     Dosage: UNK
     Route: 048
     Dates: start: 20070110
  13. VALSARTAN [Concomitant]
     Dosage: UNK
     Route: 048
     Dates: start: 20090805
  14. METFORMIN HYDROCHLORIDE [Concomitant]
     Dosage: UNK
     Route: 048
     Dates: start: 20090316
  15. ACETYLSALICYLIC ACID [Concomitant]
     Dosage: UNK
     Route: 048
     Dates: start: 20040428
  16. LORATADINE [Concomitant]
     Dosage: UNK
     Route: 048
     Dates: start: 20041027
  17. SIMVASTATIN [Concomitant]
     Dosage: UNK
     Route: 048
     Dates: start: 20090805
  18. MULTI-VITAMINS [Concomitant]
     Dosage: UNK
     Route: 048
     Dates: start: 20100115
  19. FELODIPINE [Concomitant]
     Dosage: UNK
  20. LOVAZA [Concomitant]
     Dosage: UNK
     Dates: start: 20100526

REACTIONS (3)
  - CONDITION AGGRAVATED [None]
  - RENAL FAILURE [None]
  - CARDIAC FAILURE CONGESTIVE [None]
